FAERS Safety Report 7793190-4 (Version None)
Quarter: 2011Q3

REPORT INFORMATION
  Report Type: 
  Country: None (occurrence: None)
  Receive Date: 20110930
  Receipt Date: 20110930
  Transmission Date: 20111222
  Serious: No
  Sender: FDA-Public Use
  Company Number: None

PATIENT
  Age: 68 Year
  Sex: Female
  Weight: 67.1324 kg

DRUGS (1)
  1. TRANSDERM SCOP [Suspect]
     Indication: MOTION SICKNESS
     Dosage: 1 PATCH EVERY 3 DEEP BEHIND EAR
     Route: 062
     Dates: start: 20110807, end: 20110820

REACTIONS (9)
  - DRUG WITHDRAWAL SYNDROME [None]
  - VOMITING [None]
  - OROPHARYNGEAL PAIN [None]
  - COUGH [None]
  - MALAISE [None]
  - DEHYDRATION [None]
  - NAUSEA [None]
  - FATIGUE [None]
  - BODY TEMPERATURE INCREASED [None]
